FAERS Safety Report 10128436 (Version 4)
Quarter: 2014Q2

REPORT INFORMATION
  Report Type: Report from Study
  Country: CA (occurrence: CA)
  Receive Date: 20140428
  Receipt Date: 20140508
  Transmission Date: 20141212
  Serious: Yes (Other)
  Sender: FDA-Public Use
  Company Number: CA-ROCHE-726029

PATIENT
  Age: 34 Year
  Sex: Female
  Weight: 63.5 kg

DRUGS (12)
  1. RITUXAN [Suspect]
     Indication: RHEUMATOID ARTHRITIS
     Dosage: FREQUENCY: 1 AND 15, FORM: INFUSION
     Route: 042
  2. BENADRYL (CANADA) [Concomitant]
     Indication: PREMEDICATION
     Route: 065
     Dates: start: 20100907
  3. FOLIC ACID [Concomitant]
  4. ACETAMINOPHEN [Concomitant]
     Indication: PREMEDICATION
     Route: 048
  5. DIPHENHYDRAMINE HCL [Concomitant]
     Indication: PREMEDICATION
     Route: 048
  6. TYLENOL [Concomitant]
     Indication: PREMEDICATION
     Route: 048
     Dates: start: 20100907, end: 20100907
  7. ADVIL [Concomitant]
     Route: 065
  8. LYRICA [Concomitant]
  9. NORTRIPTYLINE [Concomitant]
  10. METHOTREXATE [Concomitant]
  11. METHYLPREDNISOLONE [Concomitant]
  12. SOLU-MEDROL [Concomitant]
     Route: 042
     Dates: start: 20100907

REACTIONS (9)
  - Dyspnoea [Unknown]
  - Dysphagia [Unknown]
  - Foot deformity [Recovered/Resolved]
  - Headache [Not Recovered/Not Resolved]
  - Lip swelling [Unknown]
  - Fatigue [Unknown]
  - Dyspnoea [Recovering/Resolving]
  - Oral herpes [Recovering/Resolving]
  - Pain [Not Recovered/Not Resolved]
